FAERS Safety Report 6342960-8 (Version None)
Quarter: 2009Q3

REPORT INFORMATION
  Report Type: 
  Country: None (occurrence: None)
  Receive Date: 20090903
  Receipt Date: 20090731
  Transmission Date: 20100115
  Serious: Yes (Hospitalization)
  Sender: FDA-Public Use
  Company Number: 20090312

PATIENT
  Age: 24 Year
  Sex: Female

DRUGS (2)
  1. VENOFER [Suspect]
     Indication: IRON DEFICIENCY ANAEMIA
     Dosage: 200 MG SINGLE DOSE INTRAVENOUS DRIP
     Route: 041
     Dates: start: 20090706, end: 20090706
  2. LOVENOX [Concomitant]

REACTIONS (4)
  - ARTHRALGIA [None]
  - DIZZINESS [None]
  - NAUSEA [None]
  - THROMBOPHLEBITIS [None]
